FAERS Safety Report 9014344 (Version 1)
Quarter: 2013Q1

REPORT INFORMATION
  Report Type: Spontaneous
  Country: US (occurrence: US)
  Receive Date: 20130115
  Receipt Date: 20130115
  Transmission Date: 20140127
  Serious: No
  Sender: FDA-Public Use
  Company Number: US-PFIZER INC-2013016105

PATIENT
  Sex: Female

DRUGS (2)
  1. NEURONTIN [Suspect]
     Dosage: 5ML IN THE MORNING AND 5 ML IN THE EVENING
  2. NEURONTIN [Suspect]
     Dosage: 5 ML IN THE MORNING, 1 ML IN THE AFTERNOON AND THEN 5 ML IN THE EVENING
     Dates: start: 201212

REACTIONS (3)
  - Incorrect storage of drug [Unknown]
  - Swelling [Unknown]
  - Vomiting [Unknown]
